FAERS Safety Report 25873409 (Version 1)
Quarter: 2025Q4

REPORT INFORMATION
  Report Type: Spontaneous
  Country: US (occurrence: None)
  Receive Date: 20251001
  Receipt Date: 20251001
  Transmission Date: 20260118
  Serious: No
  Sender: FDA-CTU
  Company Number: None

PATIENT
  Age: 60 Year
  Sex: Female
  Weight: 89.1 kg

DRUGS (11)
  1. ZEPBOUND [Suspect]
     Active Substance: TIRZEPATIDE
     Indication: Weight decreased
     Dosage: OTHER QUANTITY : 1 INJECTION(S);?OTHER FREQUENCY : WEEKLY AT 2 PM.;?
     Route: 030
     Dates: start: 20250826, end: 20250902
  2. LOSARTAN [Suspect]
     Active Substance: LOSARTAN
  3. ROSUVASTATIN [Suspect]
     Active Substance: ROSUVASTATIN
  4. ESTRADIOL [Suspect]
     Active Substance: ESTRADIOL
  5. PROGESTERONE [Suspect]
     Active Substance: PROGESTERONE
  6. Losartan + Rosuvastatin [Concomitant]
  7. B12 [Concomitant]
  8. Probiotic (varies) [Concomitant]
  9. VITAMIN E [Concomitant]
     Active Substance: .ALPHA.-TOCOPHEROL
  10. IRON [Concomitant]
     Active Substance: IRON
  11. LYSINE [Concomitant]
     Active Substance: LYSINE

REACTIONS (3)
  - Euphoric mood [None]
  - Abnormal behaviour [None]
  - Suicidal ideation [None]

NARRATIVE: CASE EVENT DATE: 20250902
